FAERS Safety Report 19371154 (Version 2)
Quarter: 2021Q2

REPORT INFORMATION
  Report Type: Spontaneous
  Country: US (occurrence: US)
  Receive Date: 20210604
  Receipt Date: 20210607
  Transmission Date: 20210717
  Serious: Yes (Death, Other)
  Sender: FDA-Public Use
  Company Number: US-CELLTRION INC.-2021US007483

PATIENT

DRUGS (3)
  1. ECULIZUMAB [Suspect]
     Active Substance: ECULIZUMAB
     Indication: HAEMOLYTIC ANAEMIA
     Dosage: 600 MG
     Route: 042
  2. ETOPOSIDE. [Suspect]
     Active Substance: ETOPOSIDE
     Indication: HAEMOLYTIC ANAEMIA
     Dosage: 50 MG/M2 ON DAYS 13 AND 17
     Route: 042
  3. RITUXIMAB (UNKNOWN) [Suspect]
     Active Substance: RITUXIMAB
     Indication: HAEMOLYTIC ANAEMIA
     Dosage: 1 G (DURING FIRST WEEK, RECEIVED FIRST OF TWO DOSES)
     Route: 042

REACTIONS (9)
  - Haemodynamic instability [Unknown]
  - Multiple organ dysfunction syndrome [Fatal]
  - Drug ineffective for unapproved indication [Unknown]
  - Acute kidney injury [Unknown]
  - Coagulopathy [Unknown]
  - Encephalopathy [Unknown]
  - Venous thrombosis [Unknown]
  - Off label use [Unknown]
  - Acute hepatic failure [Unknown]
